FAERS Safety Report 9286313 (Version 1)
Quarter: 2013Q2

REPORT INFORMATION
  Report Type: Spontaneous
  Country: GB (occurrence: GB)
  Receive Date: 20130513
  Receipt Date: 20130513
  Transmission Date: 20140414
  Serious: Yes (Life-Threatening, Other)
  Sender: FDA-Public Use
  Company Number: GB-CELGENEUS-167-50794-13010752

PATIENT
  Age: 71 Year
  Sex: Female
  Weight: 59.2 kg

DRUGS (6)
  1. VIDAZA [Suspect]
     Indication: ACUTE MYELOID LEUKAEMIA
     Route: 058
     Dates: start: 201109, end: 201205
  2. VIDAZA [Suspect]
     Route: 058
     Dates: start: 20120529
  3. CIPROFLOXACIN [Concomitant]
     Indication: PROPHYLAXIS
     Route: 065
  4. FLUCONAZOLE [Concomitant]
     Indication: PRODUCT USED FOR UNKNOWN INDICATION
     Route: 065
  5. LAXIDO [Concomitant]
     Indication: PRODUCT USED FOR UNKNOWN INDICATION
     Route: 065
  6. CYTARABINE [Concomitant]
     Indication: ACUTE MYELOID LEUKAEMIA
     Route: 065

REACTIONS (6)
  - Anaemia [Not Recovered/Not Resolved]
  - Full blood count decreased [Not Recovered/Not Resolved]
  - Acute myeloid leukaemia [Unknown]
  - Neutropenia [Not Recovered/Not Resolved]
  - Lethargy [Not Recovered/Not Resolved]
  - Localised infection [Recovering/Resolving]
